FAERS Safety Report 13936202 (Version 3)
Quarter: 2018Q1

REPORT INFORMATION
  Report Type: Spontaneous
  Country: US (occurrence: US)
  Receive Date: 20170905
  Receipt Date: 20180108
  Transmission Date: 20180508
  Serious: Yes (Disabling, Other)
  Sender: FDA-Public Use
  Company Number: PHEH2017US027523

PATIENT
  Age: 10 Year
  Sex: Male
  Weight: 42.95 kg

DRUGS (5)
  1. GENOTROPIN [Suspect]
     Active Substance: SOMATROPIN
     Dosage: 1.4 MG, QD (UNDER THE SKIN)
     Route: 058
  2. GENOTROPIN [Suspect]
     Active Substance: SOMATROPIN
     Dosage: 1.6 MG, QD (UNDER THE SKIN)
     Route: 058
  3. GENOTROPIN [Suspect]
     Active Substance: SOMATROPIN
     Indication: GROWTH FAILURE
     Dosage: 12 MG, UNK (UNDER THE SKIN)
     Route: 058
  4. GUANFACINE. [Suspect]
     Active Substance: GUANFACINE
     Indication: ATTENTION DEFICIT/HYPERACTIVITY DISORDER
     Route: 065
  5. NORDITROPIN [Suspect]
     Active Substance: SOMATROPIN
     Indication: GROWTH FAILURE
     Route: 065
     Dates: end: 201610

REACTIONS (18)
  - Hyperhidrosis [Unknown]
  - Tremor [Unknown]
  - Drug ineffective [Unknown]
  - Lethargy [Unknown]
  - Skull malformation [Unknown]
  - Asthenia [Unknown]
  - Migraine [Unknown]
  - Loss of consciousness [Unknown]
  - Blood glucose decreased [Unknown]
  - Nausea [Unknown]
  - Vomiting [Recovered/Resolved]
  - Pallor [Unknown]
  - Prescription drug used without a prescription [Unknown]
  - Eating disorder [Unknown]
  - Attention deficit/hyperactivity disorder [Unknown]
  - Dysuria [Unknown]
  - Insomnia [Unknown]
  - Headache [Unknown]

NARRATIVE: CASE EVENT DATE: 201707
